FAERS Safety Report 7727398-0 (Version None)
Quarter: 2011Q3

REPORT INFORMATION
  Report Type: 
  Country: None (occurrence: None)
  Receive Date: 20110831
  Receipt Date: 20110816
  Transmission Date: 20111222
  Serious: Yes (Hospitalization)
  Sender: FDA-Public Use
  Company Number: 2011MA011997

PATIENT
  Age: 76 Year
  Sex: Male

DRUGS (1)
  1. AMINOPHYLLINE [Suspect]
     Indication: BRONCHITIS
     Dosage: 500 MG;IV
     Route: 042

REACTIONS (6)
  - LEFT VENTRICULAR DYSFUNCTION [None]
  - PNEUMONIA [None]
  - PULMONARY CONGESTION [None]
  - CARDIAC FAILURE [None]
  - STRESS CARDIOMYOPATHY [None]
  - CARDIOTOXICITY [None]
